FAERS Safety Report 25940028 (Version 1)
Quarter: 2025Q4

REPORT INFORMATION
  Report Type: Spontaneous
  Country: EU (occurrence: EU)
  Receive Date: 20251020
  Receipt Date: 20251020
  Transmission Date: 20260117
  Serious: Yes (Life-Threatening, Hospitalization)
  Sender: BOEHRINGER INGELHEIM
  Company Number: None

PATIENT
  Age: 37 Year
  Sex: Male
  Weight: 41 kg

DRUGS (8)
  1. JARDIANCE [Suspect]
     Active Substance: EMPAGLIFLOZIN
     Indication: Cardiac failure
     Dates: start: 20250923, end: 20250929
  2. DEFERIPRONE [Suspect]
     Active Substance: DEFERIPRONE
     Indication: Haemochromatosis
     Dosage: 500 MG 2 CP (AS REPORTED)  3 A DAY
     Dates: start: 20250917, end: 20250929
  3. DEFEROXAMINE MESYLATE [Suspect]
     Active Substance: DEFEROXAMINE MESYLATE
     Indication: Haemochromatosis
     Dosage: 2 G INTRAVENOUS A DAY BY CONTINUOUS INFUSION
  4. SERTRALINE [Suspect]
     Active Substance: SERTRALINE HYDROCHLORIDE
     Indication: Depression
     Dosage: 25 MG A DAY
     Dates: start: 20250924, end: 20250929
  5. FUROSEMIDE [Concomitant]
     Active Substance: FUROSEMIDE
     Indication: Cardiac failure
     Dosage: 75 MG A DAY
  6. POTASSIO CANRENOATO [Concomitant]
     Indication: Cardiac failure
     Dosage: 100 MG A DAY
  7. ENOXAPARIN SODIUM [Concomitant]
     Active Substance: ENOXAPARIN SODIUM
     Indication: Atrial fibrillation
     Dosage: 2000 UI 1 FL  TWICE A DAY
  8. IDROXICARBAMIDE [Concomitant]
     Indication: Thrombocytosis
     Dosage: 500 MG 1 CP (AS REPORTED)A DAY

REACTIONS (1)
  - Hepatitis acute [Recovering/Resolving]

NARRATIVE: CASE EVENT DATE: 20250929
